FAERS Safety Report 8878951 (Version 2)
Quarter: 2013Q1

REPORT INFORMATION
  Report Type: Report from Study
  Country: GB (occurrence: GB)
  Receive Date: 20121026
  Receipt Date: 20130208
  Transmission Date: 20140127
  Serious: Yes (Hospitalization)
  Sender: FDA-Public Use
  Company Number: GB-ROCHE-1099610

PATIENT
  Age: 76 Year
  Sex: Male
  Weight: 80 kg

DRUGS (32)
  1. RITUXIMAB [Suspect]
     Indication: RHEUMATOID ARTHRITIS
     Route: 042
     Dates: start: 20080808
  2. METHOTREXATE [Concomitant]
     Route: 065
     Dates: start: 20060814
  3. CARBOCYSTEINE [Concomitant]
     Route: 065
  4. AMLODIPINE [Concomitant]
     Route: 065
  5. LISINOPRIL [Concomitant]
     Route: 065
  6. COLISTIN [Concomitant]
     Dosage: 1 MU
     Route: 065
  7. ADCAL - D3 [Concomitant]
     Route: 065
  8. ALENDRONIC ACID [Concomitant]
     Dosage: 70 MG WEEKLY
     Route: 065
  9. CLARITHROMYCIN [Concomitant]
     Route: 065
  10. CO-CODAMOL [Concomitant]
     Route: 065
  11. MELOXICAM [Concomitant]
     Route: 065
  12. OMEPRAZOLE [Concomitant]
     Route: 065
  13. MACROGOL [Concomitant]
     Route: 065
  14. SALINE NEBULISED [Concomitant]
  15. HYDROXOCOBALAMIN [Concomitant]
     Route: 065
  16. SODIUM CHLORIDE [Concomitant]
     Dosage: 0.9 % PER 5 ML
     Route: 065
  17. HEPARIN FLUSH [Concomitant]
     Route: 065
  18. LACTULOSE [Concomitant]
     Route: 065
  19. ERTAPENEM [Concomitant]
     Route: 065
  20. SODIUM CHLORIDE [Concomitant]
     Route: 065
  21. SODIUM CHLORIDE [Concomitant]
     Route: 065
  22. HEPSAL [Concomitant]
     Route: 065
  23. CLOPIDOGREL [Concomitant]
     Dosage: FREQUENCY AM
     Route: 065
  24. CITALOPRAM [Concomitant]
     Dosage: FEQUENCY OM
     Route: 065
  25. CARBOCYSTEINE [Concomitant]
     Route: 065
  26. COLISTIN [Concomitant]
     Route: 065
  27. CALCEOS [Concomitant]
     Route: 065
  28. ALENDRONATE [Concomitant]
     Dosage: WEEKLY ON SUNDAYS
     Route: 065
  29. CLARITHROMYCIN [Concomitant]
     Dosage: FREQUENCY AM
     Route: 065
  30. PARACETAMOL [Concomitant]
     Dosage: FREQUENCY QDS
     Route: 065
  31. MELOXICAM [Concomitant]
     Route: 065
  32. LAXIDO [Concomitant]
     Route: 065

REACTIONS (3)
  - Lower respiratory tract infection [Recovered/Resolved]
  - Fall [Unknown]
  - Infective exacerbation of bronchiectasis [Unknown]
